FAERS Safety Report 5314364-8 (Version None)
Quarter: 2007Q2

REPORT INFORMATION
  Report Type: 
  Country: None (occurrence: None)
  Receive Date: 20070502
  Receipt Date: 20070426
  Transmission Date: 20071010
  Serious: Yes (Hospitalization)
  Sender: FDA-Public Use
  Company Number: PHEH2007US03903

PATIENT
  Age: 54 Year
  Sex: Female

DRUGS (7)
  1. ZELNORM [Suspect]
     Dosage: 6 MG, QD
     Dates: start: 20061001, end: 20070327
  2. OGEN [Concomitant]
     Indication: HORMONE THERAPY
  3. ZYRTEC [Concomitant]
     Indication: HYPERSENSITIVITY
  4. ZETIA [Concomitant]
     Indication: BLOOD CHOLESTEROL
  5. ZANAFLEX [Concomitant]
     Indication: MUSCLE SPASMS
  6. AZENZIA [Concomitant]
     Indication: PAIN
  7. NORCO [Concomitant]
     Indication: PAIN

REACTIONS (6)
  - CHEST PAIN [None]
  - HYPERTENSION [None]
  - HYPOTENSION [None]
  - PALPITATIONS [None]
  - SHOCK [None]
  - TREMOR [None]
